FAERS Safety Report 9357636 (Version 1)
Quarter: 2013Q2

REPORT INFORMATION
  Report Type: Spontaneous
  Country: US (occurrence: US)
  Receive Date: 20130620
  Receipt Date: 20130620
  Transmission Date: 20140414
  Serious: Yes (Other)
  Sender: FDA-Public Use
  Company Number: US-ELI_LILLY_AND_COMPANY-US201306002558

PATIENT
  Sex: Female

DRUGS (3)
  1. CYMBALTA [Suspect]
     Indication: FIBROMYALGIA
     Dosage: 20 MG, QD
  2. CYMBALTA [Suspect]
     Indication: DEPRESSION
     Dosage: 40 MG, BID
  3. CYMBALTA [Suspect]
     Dosage: 30 MG, QD

REACTIONS (4)
  - Ulcer [Unknown]
  - Ulcer haemorrhage [Unknown]
  - Lower limb fracture [Unknown]
  - Scar [Unknown]
